FAERS Safety Report 9609280 (Version 1)
Quarter: 2013Q4

REPORT INFORMATION
  Report Type: Report from Study
  Country: IT (occurrence: IT)
  Receive Date: 20131009
  Receipt Date: 20131009
  Transmission Date: 20140711
  Serious: Yes (Other)
  Sender: FDA-Public Use
  Company Number: IT-PFIZER INC-2013282385

PATIENT
  Age: 47 Year
  Sex: Female

DRUGS (11)
  1. EPIRUBICIN HCL [Suspect]
     Indication: BREAST CANCER
     Dosage: UNK, CYCLIC
  2. VANCOMYCIN HCL [Suspect]
     Indication: FEBRILE NEUTROPENIA
  3. PACLITAXEL [Suspect]
     Indication: BREAST CANCER
     Dosage: UNK, CYCLIC
  4. CYCLOPHOSPHAMIDE [Suspect]
     Indication: BREAST CANCER
     Dosage: 6000 MG/M2, UNK
  5. THIOTEPA [Suspect]
     Indication: PROPHYLAXIS
     Dosage: 600 MG/M2, ON DAY -4
  6. MELPHALAN [Suspect]
     Indication: PROPHYLAXIS
     Dosage: 140 MG/M2, ON DAY -1
  7. GRANULOCYTE COLONY-STIMULATING FACTOR NOS [Concomitant]
     Indication: BREAST CANCER
     Dosage: UNK
  8. CIPROFLOXACIN [Concomitant]
     Indication: ANTIBIOTIC PROPHYLAXIS
     Dosage: UNK
  9. FLUCONAZOLE [Concomitant]
     Indication: ANTIBIOTIC PROPHYLAXIS
     Dosage: UNK
  10. TROPISETRON [Concomitant]
     Indication: SUPPORTIVE CARE
     Dosage: UNK
  11. DEXAMETHASONE [Concomitant]
     Indication: SUPPORTIVE CARE
     Dosage: UNK

REACTIONS (2)
  - Febrile neutropenia [Recovering/Resolving]
  - Rhabdomyolysis [Recovered/Resolved]
